FAERS Safety Report 8026941-4 (Version None)
Quarter: 2012Q1

REPORT INFORMATION
  Report Type: 
  Country: None (occurrence: None)
  Receive Date: 20120106
  Receipt Date: 20120105
  Transmission Date: 20120608
  Serious: No
  Sender: FDA-Public Use
  Company Number: NL-JNJFOC-20111101393

PATIENT
  Sex: Female

DRUGS (4)
  1. DURAGESIC-100 [Suspect]
     Route: 062
  2. DURAGESIC-100 [Suspect]
     Route: 062
  3. DURAGESIC-100 [Suspect]
     Indication: PAIN
     Route: 062
  4. ACETAMINOPHEN [Concomitant]
     Route: 065

REACTIONS (9)
  - DIARRHOEA [None]
  - CHILLS [None]
  - HEADACHE [None]
  - PYREXIA [None]
  - WRONG TECHNIQUE IN DRUG USAGE PROCESS [None]
  - WEIGHT DECREASED [None]
  - NAUSEA [None]
  - DRUG INEFFECTIVE [None]
  - PRURITUS [None]
